FAERS Safety Report 15375713 (Version 1)
Quarter: 2018Q3

REPORT INFORMATION
  Report Type: Spontaneous
  Country: US (occurrence: US)
  Receive Date: 20180912
  Receipt Date: 20180912
  Transmission Date: 20181010
  Serious: No
  Sender: FDA-Public Use
  Company Number: US-VIVUS, INC.-2018V1000047

PATIENT
  Age: 16 Year
  Sex: Male

DRUGS (1)
  1. QSYMIA [Suspect]
     Active Substance: PHENTERMINE HYDROCHLORIDE\TOPIRAMATE
     Indication: WEIGHT DECREASED
     Route: 048
     Dates: start: 20180221, end: 20180301

REACTIONS (5)
  - Dry eye [Not Recovered/Not Resolved]
  - Drug prescribing error [Recovered/Resolved]
  - Lacrimation increased [Not Recovered/Not Resolved]
  - Eye pain [Not Recovered/Not Resolved]
  - Vision blurred [Not Recovered/Not Resolved]

NARRATIVE: CASE EVENT DATE: 20180221
